FAERS Safety Report 5028086-4 (Version None)
Quarter: 2006Q2

REPORT INFORMATION
  Report Type: 
  Country: None (occurrence: None)
  Receive Date: 20060613
  Receipt Date: 20060601
  Transmission Date: 20061013
  Serious: Yes (Other)
  Sender: FDA-Public Use
  Company Number: 2006071156

PATIENT
  Sex: Male

DRUGS (2)
  1. DEPO-PROVERA [Suspect]
     Indication: AGGRESSION
  2. DEPO-PROVERA [Suspect]
     Indication: SEXUAL DYSFUNCTION

REACTIONS (2)
  - INJECTION SITE MASS [None]
  - LIPOMA [None]
